FAERS Safety Report 20020672 (Version 1)
Quarter: 2021Q4

REPORT INFORMATION
  Report Type: Spontaneous
  Country: SA (occurrence: SA)
  Receive Date: 20211101
  Receipt Date: 20211101
  Transmission Date: 20220303
  Serious: Yes (Other)
  Sender: FDA-Public Use
  Company Number: SA-BEXIMCO-2021BEX00051

PATIENT
  Age: 80 Year
  Sex: Female

DRUGS (1)
  1. BACLOFEN [Suspect]
     Active Substance: BACLOFEN
     Dosage: 10 MG, ONCE
     Route: 065

REACTIONS (2)
  - Encephalopathy [Unknown]
  - Toxicity to various agents [Unknown]
